FAERS Safety Report 4666527-2 (Version None)
Quarter: 2005Q2

REPORT INFORMATION
  Report Type: 
  Country: None (occurrence: None)
  Receive Date: 20050518
  Receipt Date: 20050505
  Transmission Date: 20051028
  Serious: Yes (Other)
  Sender: FDA-Public Use
  Company Number: 2005071326

PATIENT
  Sex: Female
  Weight: 92.9874 kg

DRUGS (4)
  1. DETROL [Suspect]
     Indication: URINARY INCONTINENCE
     Dosage: ORAL
     Route: 048
  2. DETROL LA [Suspect]
     Indication: URINARY INCONTINENCE
     Dosage: 4 MG (4 MG, 1 IN 1 D), ORAL
     Route: 048
  3. VERAPAMIL [Concomitant]
  4. LEVOXYL [Concomitant]

REACTIONS (8)
  - CONDITION AGGRAVATED [None]
  - CONSTIPATION [None]
  - DRUG INEFFECTIVE [None]
  - DRY MOUTH [None]
  - FATIGUE [None]
  - SCIATIC NERVE INJURY [None]
  - SLEEP DISORDER [None]
  - TONGUE DISORDER [None]
